FAERS Safety Report 12912825 (Version 2)
Quarter: 2017Q2

REPORT INFORMATION
  Report Type: Report from Study
  Country: CA (occurrence: CA)
  Receive Date: 20161104
  Receipt Date: 20170517
  Transmission Date: 20170830
  Serious: Yes (Hospitalization, Other)
  Sender: FDA-Public Use
  Company Number: CA-JNJFOC-20161027305

PATIENT
  Age: 68 Year
  Sex: Female
  Weight: 79 kg

DRUGS (5)
  1. REMICADE [Suspect]
     Active Substance: INFLIXIMAB
     Indication: CROHN^S DISEASE
     Route: 042
     Dates: start: 20150422
  2. REMICADE [Suspect]
     Active Substance: INFLIXIMAB
     Indication: CROHN^S DISEASE
     Route: 042
     Dates: start: 20170510
  3. SYNTHROID [Concomitant]
     Active Substance: LEVOTHYROXINE SODIUM
     Route: 065
  4. REMICADE [Suspect]
     Active Substance: INFLIXIMAB
     Indication: CROHN^S DISEASE
     Dosage: PREVIOUSLY REPORTED AS 02-APR-2015
     Route: 042
     Dates: start: 20150407, end: 20160831
  5. IMODIUM [Concomitant]
     Active Substance: LOPERAMIDE HYDROCHLORIDE
     Route: 065

REACTIONS (5)
  - Peritonitis [Unknown]
  - Frequent bowel movements [Unknown]
  - Gastrointestinal disorder [Recovered/Resolved with Sequelae]
  - Weight decreased [Unknown]
  - Necrosis [Unknown]

NARRATIVE: CASE EVENT DATE: 20161005
